FAERS Safety Report 6010132-2 (Version None)
Quarter: 2008Q4

REPORT INFORMATION
  Report Type: 
  Country: None (occurrence: None)
  Receive Date: 20081217
  Receipt Date: 20081217
  Transmission Date: 20090506
  Serious: Yes (Other)
  Sender: FDA-Public Use
  Company Number: None

PATIENT
  Age: 56 Year
  Sex: Male
  Weight: 77.1115 kg

DRUGS (1)
  1. RISPERIDONE [Suspect]
     Indication: SCHIZOPHRENIA
     Dosage: 2 MG BID ORAL 4 MG HS ORAL
     Route: 048
     Dates: start: 20081121, end: 20081124

REACTIONS (4)
  - DIZZINESS [None]
  - FEELING ABNORMAL [None]
  - THINKING ABNORMAL [None]
  - TONGUE DISORDER [None]
